FAERS Safety Report 6784141-X (Version None)
Quarter: 2010Q2

REPORT INFORMATION
  Report Type: 
  Country: None (occurrence: None)
  Receive Date: 20100622
  Receipt Date: 20100611
  Transmission Date: 20101027
  Serious: Yes (Other)
  Sender: FDA-Public Use
  Company Number: ID-JNJFOC-20100604255

PATIENT
  Sex: Male
  Weight: 52 kg

DRUGS (1)
  1. DORIBAX [Suspect]
     Indication: PNEUMONIA
     Route: 041

REACTIONS (1)
  - TACHYCARDIA [None]
